FAERS Safety Report 20757146 (Version 2)
Quarter: 2022Q3

REPORT INFORMATION
  Report Type: Spontaneous
  Country: HR (occurrence: HR)
  Receive Date: 20220427
  Receipt Date: 20220713
  Transmission Date: 20221026
  Serious: Yes (Other)
  Sender: FDA-Public Use
  Company Number: HR-GLAXOSMITHKLINE-HR2022GSK069623

PATIENT

DRUGS (2)
  1. VENTOLIN [Suspect]
     Active Substance: ALBUTEROL SULFATE
     Indication: Asthma
     Dosage: 1 DF, 100 MCG/PRESSURE, UNIT DOSE 20
     Route: 055
     Dates: start: 20220226, end: 20220226
  2. AMINOPHYLLINE [Concomitant]
     Active Substance: AMINOPHYLLINE
     Indication: Product used for unknown indication
     Dosage: 4 MG, QD
     Dates: start: 20220226, end: 20220226

REACTIONS (5)
  - Hypoxia [Unknown]
  - Acidosis [Unknown]
  - Tachycardia [Unknown]
  - Hypercapnia [Unknown]
  - Overdose [Unknown]

NARRATIVE: CASE EVENT DATE: 20220226
